FAERS Safety Report 6126593-4 (Version None)
Quarter: 2009Q1

REPORT INFORMATION
  Report Type: 
  Country: None (occurrence: None)
  Receive Date: 20090320
  Receipt Date: 20090309
  Transmission Date: 20090719
  Serious: Yes (Hospitalization)
  Sender: FDA-Public Use
  Company Number: JP-PFIZER INC-2008089003

PATIENT

DRUGS (3)
  1. AZULFIDINE [Suspect]
     Dosage: 500 MG, 2X/DAY
     Dates: start: 20080815, end: 20080926
  2. HYPEN [Suspect]
     Indication: RHEUMATOID ARTHRITIS
     Dosage: 200 MG, 2X/DAY
     Route: 048
     Dates: start: 20080829, end: 20080926
  3. PREDONINE [Suspect]
     Indication: RHEUMATOID ARTHRITIS
     Dosage: 5 MG, 1X/DAY
     Dates: start: 20080815

REACTIONS (1)
  - NEUTROPENIA [None]
